FAERS Safety Report 10881533 (Version 3)
Quarter: 2020Q4

REPORT INFORMATION
  Report Type: Report from Study
  Country: JP (occurrence: JP)
  Receive Date: 20150303
  Receipt Date: 20201119
  Transmission Date: 20210113
  Serious: Yes (Hospitalization, Other)
  Sender: FDA-Public Use
  Company Number: JP-BRISTOL-MYERS SQUIBB COMPANY-21547260

PATIENT
  Age: 77 Year
  Sex: Female
  Weight: 65 kg

DRUGS (4)
  1. CETUXIMAB. [Suspect]
     Active Substance: CETUXIMAB
     Dosage: 400 MG, WEEKLY (1/W)
     Route: 041
     Dates: start: 20140722, end: 20140729
  2. CETUXIMAB. [Suspect]
     Active Substance: CETUXIMAB
     Dosage: 200 MG, WEEKLY (1/W)
     Route: 041
     Dates: start: 20140819, end: 20140819
  3. CETUXIMAB. [Suspect]
     Active Substance: CETUXIMAB
     Dosage: 300 MG, WEEKLY (1/W)
     Route: 041
     Dates: start: 20140805, end: 20140812
  4. CETUXIMAB. [Suspect]
     Active Substance: CETUXIMAB
     Indication: SQUAMOUS CELL CARCINOMA OF HEAD AND NECK
     Dosage: 640 MG, WEEKLY (1/W)
     Route: 041
     Dates: start: 20140715, end: 20140715

REACTIONS (22)
  - Dysphagia [Recovering/Resolving]
  - Radiation skin injury [Recovering/Resolving]
  - White blood cell count decreased [Recovered/Resolved]
  - Diarrhoea [Recovering/Resolving]
  - Hyponatraemia [Recovered/Resolved]
  - Blood creatinine increased [Recovered/Resolved]
  - Alanine aminotransferase increased [Recovered/Resolved]
  - Pyrexia [Recovering/Resolving]
  - Pharyngeal inflammation [Recovering/Resolving]
  - Paronychia [Recovering/Resolving]
  - Dry mouth [Not Recovered/Not Resolved]
  - Aspiration [Recovering/Resolving]
  - Decreased appetite [Recovering/Resolving]
  - Blood urea increased [Not Recovered/Not Resolved]
  - Oxygen saturation decreased [Unknown]
  - Dry skin [Recovering/Resolving]
  - Dermatitis acneiform [Recovering/Resolving]
  - Hypermagnesaemia [Recovered/Resolved]
  - Aspartate aminotransferase increased [Recovered/Resolved]
  - Stomatitis [Recovering/Resolving]
  - Face oedema [Unknown]
  - Delirium [Recovered/Resolved]

NARRATIVE: CASE EVENT DATE: 20140721
